FAERS Safety Report 8183574-7 (Version None)
Quarter: 2012Q1

REPORT INFORMATION
  Report Type: 
  Country: None (occurrence: None)
  Receive Date: 20120305
  Receipt Date: 20120222
  Transmission Date: 20120608
  Serious: No
  Sender: FDA-Public Use
  Company Number: AU-JNJFOC-20120212673

PATIENT
  Age: 52 Year
  Sex: Female

DRUGS (9)
  1. PANADOL OSTEO [Concomitant]
     Route: 065
  2. CYMBALTA [Concomitant]
     Route: 065
  3. PANTOPRAZOLE [Concomitant]
     Route: 065
  4. CRESTOR [Concomitant]
     Route: 065
  5. OXYCONTIN [Concomitant]
     Route: 065
  6. TEMAZEPAM [Concomitant]
     Route: 065
  7. OXYCODONE HCL [Concomitant]
     Route: 065
  8. CALCIUM [Concomitant]
     Route: 065
  9. DURAGESIC-100 [Suspect]
     Indication: PRODUCT USED FOR UNKNOWN INDICATION
     Route: 062

REACTIONS (5)
  - HYPERHIDROSIS [None]
  - WITHDRAWAL SYNDROME [None]
  - PRODUCT QUALITY ISSUE [None]
  - BREAKTHROUGH PAIN [None]
  - WRONG TECHNIQUE IN DRUG USAGE PROCESS [None]
